FAERS Safety Report 14176326 (Version 2)
Quarter: 2017Q4

REPORT INFORMATION
  Report Type: Spontaneous
  Country: HK (occurrence: HK)
  Receive Date: 20171109
  Receipt Date: 20171114
  Transmission Date: 20180321
  Serious: Yes (Death, Other)
  Sender: FDA-Public Use
  Company Number: HK-TAKEDA-2017MPI009809

PATIENT

DRUGS (4)
  1. CYCLOPHOSPHAMIDE. [Suspect]
     Active Substance: CYCLOPHOSPHAMIDE
     Indication: PLASMA CELL MYELOMA
     Dosage: UNK
     Route: 065
  2. NINLARO [Suspect]
     Active Substance: IXAZOMIB CITRATE
     Indication: PLASMA CELL MYELOMA
     Dosage: UNK
     Route: 048
  3. REVLIMID [Suspect]
     Active Substance: LENALIDOMIDE
     Indication: PLASMA CELL MYELOMA
     Dosage: UNK
     Route: 065
  4. DEXAMETHASONE. [Suspect]
     Active Substance: DEXAMETHASONE
     Indication: PLASMA CELL MYELOMA
     Dosage: UNK
     Route: 065

REACTIONS (12)
  - Plasma cell myeloma [Fatal]
  - Neuropathy peripheral [Unknown]
  - Diarrhoea [Unknown]
  - Pancytopenia [Unknown]
  - Constipation [Unknown]
  - Thrombocytopenia [Unknown]
  - Herpes zoster [Unknown]
  - Cardiac failure congestive [Unknown]
  - Somatic dysfunction [Unknown]
  - Neutropenia [Unknown]
  - Rash [Unknown]
  - Off label use [Unknown]
